FAERS Safety Report 5475848-5 (Version None)
Quarter: 2007Q4

REPORT INFORMATION
  Report Type: 
  Country: None (occurrence: None)
  Receive Date: 20071003
  Receipt Date: 20070926
  Transmission Date: 20080405
  Serious: Yes (Other)
  Sender: FDA-Public Use
  Company Number: BE-NOVOPROD-268005

PATIENT
  Age: 67 Year
  Sex: Male
  Weight: 89 kg

DRUGS (5)
  1. LEVEMIR [Suspect]
     Indication: TYPE 1 DIABETES MELLITUS
     Dosage: 26 IU, QD
     Dates: start: 20070524, end: 20070915
  2. METFORMIN HCL [Concomitant]
     Dosage: 2250 MG, QD
  3. ALLOPURINOL [Concomitant]
     Dosage: 300 MG, QD
  4. ATORVASTATIN CALCIUM [Concomitant]
     Dosage: 20 MG, QD
  5. PERINDOPRIL ERBUMINE [Concomitant]
     Dosage: 8 MG, QD

REACTIONS (1)
  - RESPIRATORY DISORDER [None]
